FAERS Safety Report 7540673-8 (Version None)
Quarter: 2011Q2

REPORT INFORMATION
  Report Type: 
  Country: None (occurrence: None)
  Receive Date: 20110610
  Receipt Date: 20110601
  Transmission Date: 20111010
  Serious: Yes (Hospitalization)
  Sender: FDA-Public Use
  Company Number: US-ASTRAZENECA-2011SE33681

PATIENT
  Age: 58 Year
  Sex: Male
  Weight: 83.9 kg

DRUGS (2)
  1. ALLERGY MEDICATIONS [Concomitant]
  2. CRESTOR [Suspect]
     Route: 048

REACTIONS (5)
  - FALL [None]
  - JOINT DISLOCATION [None]
  - ABASIA [None]
  - ACCIDENT [None]
  - SURGERY [None]
